FAERS Safety Report 12108469 (Version 1)
Quarter: 2016Q1

REPORT INFORMATION
  Report Type: Spontaneous
  Country: US (occurrence: US)
  Receive Date: 20160224
  Receipt Date: 20160224
  Transmission Date: 20160526
  Serious: No
  Sender: FDA-Public Use
  Company Number: US-BIOGEN-2016BI00192148

PATIENT
  Sex: Female

DRUGS (1)
  1. TECFIDERA [Suspect]
     Active Substance: DIMETHYL FUMARATE
     Indication: MULTIPLE SCLEROSIS
     Route: 048

REACTIONS (6)
  - Eye disorder [Unknown]
  - Paraesthesia [Unknown]
  - Depressed level of consciousness [Unknown]
  - Hypoaesthesia [Unknown]
  - Memory impairment [Unknown]
  - Time perception altered [Unknown]
